FAERS Safety Report 20736130 (Version 1)
Quarter: 2022Q2

REPORT INFORMATION
  Report Type: Spontaneous
  Country: US (occurrence: None)
  Receive Date: 20220421
  Receipt Date: 20220421
  Transmission Date: 20220721
  Serious: No
  Sender: FDA-Public Use
  Company Number: US-ROCHE-2890889

PATIENT
  Sex: Female

DRUGS (1)
  1. AVASTIN [Suspect]
     Active Substance: BEVACIZUMAB
     Indication: Vitreous haemorrhage
     Route: 065

REACTIONS (2)
  - Intentional product use issue [Unknown]
  - No adverse event [Unknown]
